FAERS Safety Report 20457181 (Version 1)
Quarter: 2022Q1

REPORT INFORMATION
  Report Type: Spontaneous
  Country: AU (occurrence: AU)
  Receive Date: 20220210
  Receipt Date: 20220210
  Transmission Date: 20220423
  Serious: Yes (Hospitalization, Other)
  Sender: FDA-Public Use
  Company Number: AU-MYLANLABS-2022M1010616

PATIENT
  Age: 24 Year
  Sex: Male

DRUGS (1)
  1. CLOZARIL [Suspect]
     Active Substance: CLOZAPINE
     Indication: Schizophrenia
     Dosage: DOSE WAS INCREASED BY 25 MG PER DAY
     Route: 048
     Dates: start: 20210922

REACTIONS (4)
  - Seizure [Recovering/Resolving]
  - Unresponsive to stimuli [Unknown]
  - Lethargy [Unknown]
  - Hypotonia [Unknown]

NARRATIVE: CASE EVENT DATE: 20220202
